FAERS Safety Report 24587141 (Version 2)
Quarter: 2024Q4

REPORT INFORMATION
  Report Type: Spontaneous
  Country: JP (occurrence: JP)
  Receive Date: 20241107
  Receipt Date: 20241224
  Transmission Date: 20250114
  Serious: Yes (Death, Other)
  Sender: SANOFI AVENTIS
  Company Number: JP-SAKK-2024SA311613AA

PATIENT
  Age: 79 Year
  Sex: Male

DRUGS (2)
  1. JEVTANA [Suspect]
     Active Substance: CABAZITAXEL
     Indication: Product used for unknown indication
     Dosage: 25 MG/M2
     Route: 041
     Dates: start: 20240926
  2. JEVTANA [Suspect]
     Active Substance: CABAZITAXEL
     Dosage: UNK
     Route: 041

REACTIONS (3)
  - Hyponatraemia [Fatal]
  - Altered state of consciousness [Fatal]
  - Cardiac failure [Fatal]

NARRATIVE: CASE EVENT DATE: 20241003
